FAERS Safety Report 23829949 (Version 2)
Quarter: 2024Q2

REPORT INFORMATION
  Report Type: Report from Study
  Country: GB (occurrence: GB)
  Receive Date: 20240508
  Receipt Date: 20240527
  Transmission Date: 20240715
  Serious: Yes (Hospitalization, Other)
  Sender: FDA-Public Use
  Company Number: GB-Gedeon Richter Plc.-2024_GR_004096

PATIENT
  Sex: Female

DRUGS (2)
  1. TERIPARATIDE [Suspect]
     Active Substance: TERIPARATIDE
     Indication: Osteoporosis
     Route: 058
     Dates: start: 2022
  2. ZOLEDRONIC ACID [Suspect]
     Active Substance: ZOLEDRONIC ACID
     Indication: Product use in unapproved indication
     Route: 065

REACTIONS (3)
  - Atrial fibrillation [Unknown]
  - Therapy interrupted [Unknown]
  - Acidosis [Unknown]
